FAERS Safety Report 20017316 (Version 1)
Quarter: 2021Q4

REPORT INFORMATION
  Report Type: Spontaneous
  Country: NL (occurrence: NL)
  Receive Date: 20211030
  Receipt Date: 20211030
  Transmission Date: 20220303
  Serious: Yes (Other)
  Sender: FDA-Public Use
  Company Number: None

PATIENT
  Sex: Female

DRUGS (7)
  1. PANTOPRAZOLE [Suspect]
     Active Substance: PANTOPRAZOLE
     Indication: Oesophagitis
     Dosage: 40 MILLIGRAM DAILY;
     Route: 065
     Dates: start: 2019, end: 20210607
  2. METFORMINE MGA/ Brand name not specified [Concomitant]
     Dosage: 1000 MG, THERAPY START AND END DATE: ASKU
  3. GLICLAZIDE MGA / Brand name not specified [Concomitant]
     Dosage: 1D120MG, THERAPY START AND END DATE: ASKU
  4. ATORVASTATINE/ Brand name not specified [Concomitant]
     Dosage: 40 MG, THERAPY START AND END DATE: ASKU
  5. AMLODIPINE/ Brand name not specified [Concomitant]
     Dosage: 5 MG, THERAPY START AND END DATE: ASKU
  6. APIXABAN/ Brand name not specified [Concomitant]
     Dosage: 5 MG, THERAPY START AND END DATE: ASKU
  7. METOPROLOL (SUCCINAAT) / Brand name not specified [Concomitant]
     Dosage: 50 MG, THERAPY START AND END DATE: ASKU

REACTIONS (3)
  - Hypokalaemia [Recovered/Resolved]
  - Hypocalcaemia [Recovered/Resolved]
  - Hypomagnesaemia [Recovered/Resolved]
